FAERS Safety Report 5127023-1 (Version None)
Quarter: 2006Q4

REPORT INFORMATION
  Report Type: 
  Country: None (occurrence: None)
  Receive Date: 20061013
  Receipt Date: 20061005
  Transmission Date: 20070319
  Serious: Yes (Death, Hospitalization)
  Sender: FDA-Public Use
  Company Number: FR-GLAXOSMITHKLINE-B0441659A

PATIENT
  Age: 71 Year
  Sex: Female
  Weight: 70 kg

DRUGS (7)
  1. ARIXTRA [Suspect]
     Indication: VENOUS THROMBOSIS
     Dosage: 7.5MG PER DAY
     Route: 058
     Dates: start: 20060101, end: 20060101
  2. KLIPAL [Concomitant]
  3. PERINDOPRIL ERBUMINE [Concomitant]
     Indication: CARDIAC FAILURE
  4. VASODILATOR [Concomitant]
  5. PHLEBOTONIC DRUG NOS [Concomitant]
  6. LASIX [Concomitant]
  7. POTASSIUM [Concomitant]

REACTIONS (5)
  - ABDOMINAL PAIN [None]
  - ANAEMIA [None]
  - ANEURYSM RUPTURED [None]
  - HYPOTENSION [None]
  - INTRA-ABDOMINAL HAEMORRHAGE [None]
